FAERS Safety Report 23591862 (Version 3)
Quarter: 2024Q1

REPORT INFORMATION
  Report Type: Spontaneous
  Country: CA (occurrence: CA)
  Receive Date: 20240304
  Receipt Date: 20240328
  Transmission Date: 20240409
  Serious: No
  Sender: FDA-Public Use
  Company Number: CA-PFIZER INC-202400038362

PATIENT
  Age: 23 Year
  Sex: Female

DRUGS (2)
  1. ABRILADA [Suspect]
     Active Substance: ADALIMUMAB-AFZB
     Indication: Rheumatoid arthritis
     Dosage: 40 MG, EVERY 2 WEEKS PREFILLED PEN
     Route: 058
     Dates: start: 20231102
  2. LEFLUNOMIDE [Concomitant]
     Active Substance: LEFLUNOMIDE
     Dosage: 1 DF

REACTIONS (2)
  - Incorrect dose administered by device [Unknown]
  - Device use issue [Unknown]
